FAERS Safety Report 10258130 (Version 1)
Quarter: 2014Q2

REPORT INFORMATION
  Report Type: Spontaneous
  Country: IT (occurrence: IT)
  Receive Date: 20140625
  Receipt Date: 20140625
  Transmission Date: 20141212
  Serious: Yes (Hospitalization)
  Sender: FDA-Public Use
  Company Number: PHHY2014IT074641

PATIENT
  Age: 59 Year
  Sex: Female

DRUGS (5)
  1. LANSOPRAZOLE [Suspect]
     Dosage: 30 MG, QD
     Route: 048
     Dates: start: 20140519, end: 20140607
  2. METFORMIN CLORIDRATE [Suspect]
     Dosage: 500 MG, QD
     Route: 048
     Dates: start: 20140519, end: 20140607
  3. DOBETIN [Suspect]
     Dosage: 1 DF, QD
     Route: 048
     Dates: start: 20140602, end: 20140607
  4. TAVOR (LORAZEPAM) [Concomitant]
     Dosage: 1 MG, UNK
     Route: 048
  5. SOLDESAM [Concomitant]
     Dosage: 96 DRP, UNK
     Route: 048
     Dates: start: 20140519, end: 20140607

REACTIONS (2)
  - Urticaria [Recovering/Resolving]
  - Rash [Recovering/Resolving]
